FAERS Safety Report 8850750 (Version 1)
Quarter: 2012Q4

REPORT INFORMATION
  Report Type: 
  Country: US (occurrence: US)
  Receive Date: 20121019
  Receipt Date: 20121019
  Transmission Date: 20130627
  Serious: No
  Sender: FDA-Public Use
  Company Number: US-TARO-2011P1008571

PATIENT
  Sex: Male

DRUGS (1)
  1. HYDROCORTISONE VALERATE [Suspect]
     Indication: ECZEMA
     Route: 061
     Dates: start: 20110815

REACTIONS (2)
  - Application site pain [Unknown]
  - Application site discomfort [Unknown]
